FAERS Safety Report 7512432-3 (Version None)
Quarter: 2011Q2

REPORT INFORMATION
  Report Type: 
  Country: None (occurrence: None)
  Receive Date: 20110531
  Receipt Date: 20110520
  Transmission Date: 20111010
  Serious: Yes (Hospitalization)
  Sender: FDA-Public Use
  Company Number: JP-ROCHE-773110

PATIENT
  Sex: Male
  Weight: 68 kg

DRUGS (4)
  1. ACTEMRA [Suspect]
     Indication: RHEUMATOID ARTHRITIS
     Dosage: NOTE: EIGHT TIME ADMINISTERING
     Route: 041
     Dates: start: 20100831, end: 20110324
  2. SULFASALAZINE [Concomitant]
     Route: 048
     Dates: start: 20110224, end: 20110406
  3. LOXONIN [Suspect]
     Indication: RHEUMATOID ARTHRITIS
     Route: 048
     Dates: start: 20071108, end: 20110406
  4. PREDNISOLONE [Concomitant]
     Route: 048
     Dates: start: 20070928

REACTIONS (1)
  - DIVERTICULUM INTESTINAL HAEMORRHAGIC [None]
